FAERS Safety Report 5642695-0 (Version None)
Quarter: 2008Q1

REPORT INFORMATION
  Report Type: 
  Country: None (occurrence: None)
  Receive Date: 20080226
  Receipt Date: 20080221
  Transmission Date: 20080703
  Serious: Yes (Hospitalization)
  Sender: FDA-Public Use
  Company Number: E2020-02337-SPO-FR

PATIENT
  Age: 85 Year
  Sex: Female

DRUGS (14)
  1. ARICEPT [Suspect]
     Indication: DEMENTIA ALZHEIMER'S TYPE
     Dosage: 10 MG, 1 IN 1 D, ORAL
     Route: 048
     Dates: start: 20060701, end: 20080101
  2. NITRIDERM (GLYCERYL TRINITRATE) [Suspect]
     Dosage: 15 MG
     Dates: start: 20071101, end: 20080127
  3. ENALAPRIL MALEATE [Suspect]
     Indication: HYPERTENSION
     Dosage: 10 MG, ORAL
     Route: 048
     Dates: start: 20071101
  4. FUROSEMIDE [Suspect]
     Indication: HYPERTENSION
     Dosage: 20 MG, ORAL
     Route: 048
     Dates: start: 20060701
  5. GANFORT (TIMILOL/BIMATOPROST) [Suspect]
     Indication: OPEN ANGLE GLAUCOMA
     Dosage: 1 DOSAGE FORMS, OCULAR USE
     Dates: start: 20070901
  6. CLONAZEPAM [Concomitant]
  7. ALPRAZOLAM [Concomitant]
  8. TRUSOPT [Concomitant]
  9. EUPHYTOSE (EUPHYTOSE) [Concomitant]
  10. AMARYL [Concomitant]
  11. NEXIUM [Concomitant]
  12. ACETAMINOPHEN [Concomitant]
  13. FORLAX (MACROGOL) [Concomitant]
  14. KARDEGIC (ACETYLSALICYATE LYSINE) [Concomitant]

REACTIONS (9)
  - ABDOMINAL PAIN [None]
  - ATRIAL FIBRILLATION [None]
  - CARDIAC ARREST [None]
  - DIARRHOEA [None]
  - DIZZINESS [None]
  - HYPOTENSION [None]
  - LOSS OF CONSCIOUSNESS [None]
  - LOW CARDIAC OUTPUT SYNDROME [None]
  - MALAISE [None]
